FAERS Safety Report 13143745 (Version 1)
Quarter: 2017Q1

REPORT INFORMATION
  Report Type: Spontaneous
  Country: AU (occurrence: AU)
  Receive Date: 20170124
  Receipt Date: 20170124
  Transmission Date: 20170428
  Serious: Yes (Death, Other)
  Sender: FDA-Public Use
  Company Number: AU-BRISTOL-MYERS SQUIBB COMPANY-BMS-2017-001956

PATIENT
  Age: 78 Year
  Weight: 76 kg

DRUGS (2)
  1. OPDIVO [Suspect]
     Active Substance: NIVOLUMAB
     Indication: PRODUCT USED FOR UNKNOWN INDICATION
     Dosage: 228 MG, UNK
     Route: 065
     Dates: start: 20161201
  2. OPDIVO [Suspect]
     Active Substance: NIVOLUMAB
     Indication: SQUAMOUS CELL CARCINOMA OF LUNG
     Dosage: 228 MG, UNK
     Route: 065
     Dates: start: 20161103

REACTIONS (1)
  - Death [Fatal]

NARRATIVE: CASE EVENT DATE: 20161209
